FAERS Safety Report 15929408 (Version 1)
Quarter: 2019Q1

REPORT INFORMATION
  Report Type: Spontaneous
  Country: US (occurrence: US)
  Receive Date: 20190206
  Receipt Date: 20190206
  Transmission Date: 20190417
  Serious: Yes (Death, Hospitalization)
  Sender: FDA-Public Use
  Company Number: US-BIOGEN-2007BI008968

PATIENT
  Age: 58 Year
  Sex: Female

DRUGS (1)
  1. TYSABRI [Suspect]
     Active Substance: NATALIZUMAB
     Indication: MULTIPLE SCLEROSIS
     Route: 042
     Dates: start: 20061017, end: 20070213

REACTIONS (8)
  - Road traffic accident [Recovered/Resolved]
  - Immune system disorder [Unknown]
  - Escherichia sepsis [Fatal]
  - Progressive multiple sclerosis [Fatal]
  - Injury [Unknown]
  - Pseudomonal sepsis [Fatal]
  - Confusional state [Unknown]
  - Muscle spasms [Unknown]

NARRATIVE: CASE EVENT DATE: 200610
